FAERS Safety Report 23453796 (Version 1)
Quarter: 2024Q1

REPORT INFORMATION
  Report Type: Spontaneous
  Country: US (occurrence: US)
  Receive Date: 20240129
  Receipt Date: 20240129
  Transmission Date: 20240410
  Serious: Yes (Other)
  Sender: FDA-Public Use
  Company Number: US-BRISTOL-MYERS SQUIBB COMPANY-2024-010811

PATIENT
  Age: 52 Year
  Sex: Male

DRUGS (20)
  1. REVLIMID [Suspect]
     Active Substance: LENALIDOMIDE
     Indication: Plasma cell myeloma
     Dosage: FREQUENCY: 28
     Route: 048
     Dates: start: 20211004
  2. MEDROL [Concomitant]
     Active Substance: METHYLPREDNISOLONE
     Indication: Product used for unknown indication
  3. BUTRANS [Concomitant]
     Active Substance: BUPRENORPHINE
     Indication: Product used for unknown indication
     Dosage: 4 PATCH
     Dates: start: 20231222, end: 20240119
  4. INDERAL [Concomitant]
     Active Substance: PROPRANOLOL HYDROCHLORIDE
     Indication: Product used for unknown indication
     Route: 048
  5. TOPAMAX [Concomitant]
     Active Substance: TOPIRAMATE
     Indication: Product used for unknown indication
     Route: 048
  6. PRINIVIL [Concomitant]
     Active Substance: LISINOPRIL
     Indication: Product used for unknown indication
     Route: 048
  7. LEXAPRO [Concomitant]
     Active Substance: ESCITALOPRAM OXALATE
     Indication: Product used for unknown indication
     Route: 048
  8. LEVOTHYROXINE [Concomitant]
     Active Substance: LEVOTHYROXINE\LEVOTHYROXINE SODIUM
     Indication: Product used for unknown indication
     Route: 048
  9. CHOLECALCIFEROL\FISH OIL [Concomitant]
     Active Substance: CHOLECALCIFEROL\FISH OIL
     Indication: Product used for unknown indication
     Dosage: 300-1000 MG
     Route: 048
  10. ECOTRIN [Concomitant]
     Active Substance: ASPIRIN
     Indication: Product used for unknown indication
     Route: 048
  11. OSCAL [CALCITRIOL] [Concomitant]
     Indication: Product used for unknown indication
     Dosage: 250MG-3.125 MCG
     Route: 048
  12. VITAMIN B12 [Concomitant]
     Active Substance: CYANOCOBALAMIN
     Indication: Product used for unknown indication
     Route: 048
  13. MAGNESIUM OXIDE [Concomitant]
     Active Substance: MAGNESIUM OXIDE
     Indication: Product used for unknown indication
     Route: 048
  14. ROXICODONE [Concomitant]
     Active Substance: OXYCODONE HYDROCHLORIDE
     Indication: Pain
     Dosage: TAKE 1 TABLET BY MOUTH EVERY 6 HOUR AS NEEDED FOR PAIN
     Route: 048
     Dates: start: 20240114
  15. FLOMAX [Concomitant]
     Active Substance: TAMSULOSIN HYDROCHLORIDE
     Indication: Product used for unknown indication
     Dosage: BEDTIME
     Route: 048
  16. ZANAFLEX [Concomitant]
     Active Substance: TIZANIDINE HYDROCHLORIDE
     Indication: Muscle spasms
     Dosage: TAKE 1-2 TABLET (4-8 MG) BY MOUTH EVERY 8 HOUR AS NEEDED
     Route: 048
  17. KEFLEX [Concomitant]
     Active Substance: CEPHALEXIN
     Indication: Product used for unknown indication
     Route: 048
  18. ALLERGY RELIEF [LORATADINE] [Concomitant]
     Indication: Product used for unknown indication
     Route: 048
  19. FLONASE [Concomitant]
     Active Substance: FLUTICASONE PROPIONATE
     Indication: Product used for unknown indication
     Dosage: USE 2 SPRAY IN EACH NOSTRIL DAILY
     Route: 045
  20. NARCAN [Concomitant]
     Active Substance: NALOXONE HYDROCHLORIDE
     Indication: Product used for unknown indication
     Dosage: ADMINISTER 1 SPRAY (4 MG) IN 1 NOSTRIL 1 TIME. MAY REPEAT IN ALTERNATING NOSTRILS EVERY 2-3 MIN UNTI

REACTIONS (8)
  - Arthralgia [Unknown]
  - Back pain [Unknown]
  - Leukopenia [Unknown]
  - Lymphopenia [Unknown]
  - Plasma cell myeloma recurrent [Unknown]
  - Neck pain [Unknown]
  - Plasma cell myeloma [Unknown]
  - Pathological fracture [Unknown]
